FAERS Safety Report 7186222-8 (Version None)
Quarter: 2010Q4

REPORT INFORMATION
  Report Type: 
  Country: None (occurrence: None)
  Receive Date: 20101222
  Receipt Date: 20100617
  Transmission Date: 20110411
  Serious: No
  Sender: FDA-Public Use
  Company Number: US-AMGEN-KDL419151

PATIENT

DRUGS (3)
  1. ENBREL [Suspect]
     Indication: RHEUMATOID ARTHRITIS
     Dosage: UNK UNK, UNK
     Dates: start: 20030415
  2. HYDROXYCHLOROQUINE SULFATE [Concomitant]
     Dosage: UNK UNK, UNK
  3. AZATHIOPRINE [Concomitant]
     Dosage: UNK UNK, UNK

REACTIONS (4)
  - FATIGUE [None]
  - HYPERSOMNIA [None]
  - POOR QUALITY SLEEP [None]
  - VOMITING [None]
